FAERS Safety Report 6137589-0 (Version None)
Quarter: 2009Q1

REPORT INFORMATION
  Report Type: 
  Country: None (occurrence: None)
  Receive Date: 20090331
  Receipt Date: 20090319
  Transmission Date: 20090719
  Serious: Yes (Other)
  Sender: FDA-Public Use
  Company Number: PHHY2009JP10850

PATIENT
  Age: 63 Year
  Sex: Male

DRUGS (3)
  1. DIOVAN [Suspect]
     Route: 048
  2. MUCOSTA [Concomitant]
     Route: 048
  3. BIOFERMIN [Concomitant]

REACTIONS (2)
  - ABASIA [None]
  - MYALGIA [None]
